FAERS Safety Report 7570125-0 (Version None)
Quarter: 2011Q2

REPORT INFORMATION
  Report Type: 
  Country: None (occurrence: None)
  Receive Date: 20110624
  Receipt Date: 20110613
  Transmission Date: 20111010
  Serious: Yes (Other)
  Sender: FDA-Public Use
  Company Number: US-BRISTOL-MYERS SQUIBB COMPANY-15824923

PATIENT
  Age: 63 Year
  Sex: Male

DRUGS (6)
  1. RITUXIMAB [Suspect]
     Indication: EPSTEIN-BARR VIRUS ASSOCIATED LYMPHOPROLIFERATIVE DISORDER
  2. CYCLOPHOSPHAMIDE [Suspect]
     Indication: EPSTEIN-BARR VIRUS ASSOCIATED LYMPHOPROLIFERATIVE DISORDER
  3. DOXORUBICIN HCL [Suspect]
     Indication: EPSTEIN-BARR VIRUS ASSOCIATED LYMPHOPROLIFERATIVE DISORDER
  4. VINCRISTINE [Suspect]
     Indication: EPSTEIN-BARR VIRUS ASSOCIATED LYMPHOPROLIFERATIVE DISORDER
  5. ETOPOSIDE [Suspect]
     Indication: EPSTEIN-BARR VIRUS ASSOCIATED LYMPHOPROLIFERATIVE DISORDER
  6. PREDNISONE [Suspect]
     Indication: EPSTEIN-BARR VIRUS ASSOCIATED LYMPHOPROLIFERATIVE DISORDER

REACTIONS (1)
  - GRAFT VERSUS HOST DISEASE [None]
